FAERS Safety Report 6631681-X (Version None)
Quarter: 2010Q1

REPORT INFORMATION
  Report Type: 
  Country: None (occurrence: None)
  Receive Date: 20100312
  Receipt Date: 20100301
  Transmission Date: 20100710
  Serious: Yes (Hospitalization, Other)
  Sender: FDA-Public Use
  Company Number: JP-PFIZER INC-2010022064

PATIENT
  Age: 55 Year
  Sex: Female

DRUGS (4)
  1. SOLANAX [Suspect]
     Indication: PSYCHOSOMATIC DISEASE
     Dosage: UNK
     Route: 048
  2. DORAL [Concomitant]
  3. DOGMATYL [Concomitant]
  4. DEPAS [Concomitant]

REACTIONS (1)
  - INAPPROPRIATE ANTIDIURETIC HORMONE SECRETION [None]
